FAERS Safety Report 16299568 (Version 7)
Quarter: 2022Q2

REPORT INFORMATION
  Report Type: Report from Study
  Country: CA (occurrence: CA)
  Receive Date: 20190510
  Receipt Date: 20220512
  Transmission Date: 20220721
  Serious: Yes (Hospitalization, Other)
  Sender: FDA-Public Use
  Company Number: CA-002147023-PHHY2012CA082420

PATIENT
  Sex: Male

DRUGS (5)
  1. TOBI PODHALER [Suspect]
     Active Substance: TOBRAMYCIN
     Indication: Cystic fibrosis
     Dosage: UNK, BID
     Route: 065
  2. XOLAIR [Suspect]
     Active Substance: OMALIZUMAB
     Indication: Asthma
     Dosage: 150 MILLIGRAM, MONTHLY, EVERY 4 WEEKS
     Route: 058
     Dates: start: 20101110
  3. XOLAIR [Suspect]
     Active Substance: OMALIZUMAB
     Dosage: UNK
     Route: 058
     Dates: start: 20161209
  4. XOLAIR [Suspect]
     Active Substance: OMALIZUMAB
     Dosage: 150 MILLIGRAM, MONTHLY, EVERY 4 WEEKS
     Route: 058
     Dates: start: 2018
  5. TRIKAFTA [Concomitant]
     Active Substance: ELEXACAFTOR\IVACAFTOR\TEZACAFTOR
     Dosage: UNK

REACTIONS (16)
  - Asthma [Unknown]
  - Pneumonia [Unknown]
  - Fibrosis [Unknown]
  - Sputum discoloured [Unknown]
  - Moaning [Unknown]
  - Heart rate increased [Unknown]
  - Weight increased [Unknown]
  - Increased viscosity of bronchial secretion [Unknown]
  - Increased bronchial secretion [Unknown]
  - Forced expiratory volume decreased [Not Recovered/Not Resolved]
  - Dyspnoea [Unknown]
  - Malaise [Unknown]
  - Influenza [Unknown]
  - Nasopharyngitis [Unknown]
  - Bronchospasm [Unknown]
  - Cough [Unknown]

NARRATIVE: CASE EVENT DATE: 20120101
